FAERS Safety Report 19414891 (Version 1)
Quarter: 2021Q2

REPORT INFORMATION
  Report Type: Spontaneous
  Country: JP (occurrence: JP)
  Receive Date: 20210615
  Receipt Date: 20210615
  Transmission Date: 20210717
  Serious: Yes (Hospitalization)
  Sender: FDA-Public Use
  Company Number: JP-LUPIN PHARMACEUTICALS INC.-2021-09195

PATIENT
  Age: 61 Year
  Sex: Male

DRUGS (8)
  1. METHYLPREDNISOLONE. [Suspect]
     Active Substance: METHYLPREDNISOLONE
     Indication: PERICARDITIS CONSTRICTIVE
     Dosage: 1 GRAM, QD
     Route: 065
  2. TOLVAPTAN [Suspect]
     Active Substance: TOLVAPTAN
     Indication: PERICARDITIS CONSTRICTIVE
     Dosage: 15 MILLIGRAM, QD
     Route: 065
  3. FUROSEMIDE. [Suspect]
     Active Substance: FUROSEMIDE
     Indication: PERICARDITIS CONSTRICTIVE
     Dosage: 10 MILLIGRAM, QD
     Route: 065
  4. FUROSEMIDE. [Suspect]
     Active Substance: FUROSEMIDE
     Dosage: 40 MILLIGRAM, QD
     Route: 065
  5. NIVOLUMAB [Concomitant]
     Active Substance: NIVOLUMAB
     Indication: NON-SMALL CELL LUNG CANCER
     Dosage: 3 MILLIGRAM/KILOGRAM (EVERY 2 WEEKS)
     Route: 065
     Dates: start: 201612
  6. INFLIXIMAB [Concomitant]
     Active Substance: INFLIXIMAB
     Indication: PERICARDITIS CONSTRICTIVE
     Dosage: 5 MILLIGRAM/KILOGRAM (ADMINISTERED 2 AND 6WEEKS AFTER THE 1ST ADMINISTRATION, AND EVERY 8WEEKS THERE
     Route: 065
  7. PREDNISOLONE. [Suspect]
     Active Substance: PREDNISOLONE
     Indication: PERICARDITIS CONSTRICTIVE
     Dosage: 0.5 MILLIGRAM/KILOGRAM
     Route: 065
  8. PREDNISOLONE. [Suspect]
     Active Substance: PREDNISOLONE
     Dosage: 1 MILLIGRAM/KILOGRAM
     Route: 065

REACTIONS (2)
  - Drug ineffective for unapproved indication [Unknown]
  - Off label use [Unknown]
